FAERS Safety Report 13256747 (Version 1)
Quarter: 2017Q1

REPORT INFORMATION
  Report Type: Spontaneous
  Country: US (occurrence: US)
  Receive Date: 20170221
  Receipt Date: 20170221
  Transmission Date: 20170428
  Serious: Yes (Life-Threatening, Disabling, Other)
  Sender: FDA-Public Use
  Company Number: None

PATIENT
  Age: 31 Year
  Sex: Male
  Weight: 78.75 kg

DRUGS (1)
  1. PROPECIA [Suspect]
     Active Substance: FINASTERIDE

REACTIONS (5)
  - Suicidal ideation [None]
  - Prostatic pain [None]
  - Depression [None]
  - Hypoaesthesia [None]
  - Middle insomnia [None]

NARRATIVE: CASE EVENT DATE: 20160912
